FAERS Safety Report 6916899-0 (Version None)
Quarter: 2010Q3

REPORT INFORMATION
  Report Type: 
  Country: None (occurrence: None)
  Receive Date: 20100810
  Receipt Date: 20100726
  Transmission Date: 20110219
  Serious: Yes (Other)
  Sender: FDA-Public Use
  Company Number: A0866240A

PATIENT
  Age: 35 Year
  Sex: Female
  Weight: 57.3 kg

DRUGS (18)
  1. ALLI [Suspect]
     Indication: PRODUCT USED FOR UNKNOWN INDICATION
     Route: 048
  2. CYCLOBENZAPRINE HCL [Concomitant]
     Dates: start: 20100521
  3. OMEPRAZOLE [Concomitant]
     Dosage: 20MG PER DAY
     Route: 048
     Dates: start: 20100521
  4. BUPROPION HCL [Concomitant]
     Dates: start: 20090310
  5. XANAX [Concomitant]
     Route: 048
     Dates: start: 20090310
  6. CITALOPRAM HYDROBROMIDE [Concomitant]
     Route: 048
     Dates: start: 20090310
  7. METFORMIN HCL [Concomitant]
     Dosage: 500MG TWICE PER DAY
     Route: 048
     Dates: start: 20091113
  8. DICYCLOMINE [Concomitant]
     Route: 048
     Dates: start: 20090831
  9. HYDROCORTISONE + LIDOCAINE [Concomitant]
     Dates: start: 20090831
  10. LOPERAMIDE HCL [Concomitant]
     Route: 048
     Dates: start: 20090831
  11. VENTOLIN HFA [Concomitant]
     Route: 055
     Dates: start: 20100601
  12. QVAR 40 [Concomitant]
     Dates: start: 20100601
  13. ALLEGRA [Concomitant]
     Indication: MULTIPLE ALLERGIES
     Dosage: 180MG AS REQUIRED
     Route: 048
     Dates: start: 20100601
  14. ALBUTEROL SULFATE [Concomitant]
     Route: 055
     Dates: start: 20100617
  15. PULMICORT [Concomitant]
     Route: 055
  16. ANTIDEPRESSANT [Concomitant]
     Indication: DEPRESSION
  17. UNKNOWN DRUG FOR ANXIETY [Concomitant]
     Indication: ANXIETY
  18. DIABETES MEDICATION [Concomitant]

REACTIONS (2)
  - ASTHMA [None]
  - DYSPNOEA [None]
